FAERS Safety Report 16364285 (Version 2)
Quarter: 2019Q3

REPORT INFORMATION
  Report Type: Spontaneous
  Country: US (occurrence: US)
  Receive Date: 20190528
  Receipt Date: 20190822
  Transmission Date: 20191004
  Serious: Yes (Other)
  Sender: FDA-Public Use
  Company Number: US-009507513-1905USA009991

PATIENT
  Age: 64 Year
  Sex: Female

DRUGS (1)
  1. TICE BCG [Suspect]
     Active Substance: BACILLUS CALMETTE-GUERIN SUBSTRAIN TICE LIVE ANTIGEN
     Indication: BLADDER CANCER
     Dosage: UNK, INTERMITTENTLY
     Route: 043
     Dates: start: 1999

REACTIONS (5)
  - Bladder cancer recurrent [Recovered/Resolved]
  - Metastases to kidney [Not Recovered/Not Resolved]
  - Bladder cancer recurrent [Not Recovered/Not Resolved]
  - Product availability issue [Unknown]
  - Metastases to urinary tract [Not Recovered/Not Resolved]

NARRATIVE: CASE EVENT DATE: 201801
